FAERS Safety Report 9281796 (Version 2)
Quarter: 2013Q4

REPORT INFORMATION
  Report Type: Spontaneous
  Country: US (occurrence: US)
  Receive Date: 20130510
  Receipt Date: 20131008
  Transmission Date: 20140711
  Serious: Yes (Death, Hospitalization)
  Sender: FDA-Public Use
  Company Number: US-B.I. PHARMACEUTICALS,INC./RIDGEFIELD-2013-BI-12720BP

PATIENT
  Age: 88 Year
  Sex: Female
  Weight: 65.77 kg

DRUGS (15)
  1. PRADAXA [Suspect]
     Indication: ANTICOAGULANT THERAPY
     Dosage: 300 MG
     Route: 048
     Dates: start: 20110526, end: 20120221
  2. PRADAXA [Suspect]
     Indication: ATRIAL FIBRILLATION
  3. LASIX [Concomitant]
     Dosage: 20 MG
     Route: 048
  4. LETROZOLE [Concomitant]
     Dosage: 2.5 MG
     Route: 048
  5. LISINOPRIL [Concomitant]
     Dosage: 2.5 MG
     Route: 048
  6. ADVAIR DISKUS [Concomitant]
     Dosage: 500 MCG
     Route: 055
  7. CRESTOR [Concomitant]
     Dosage: 10 MG
     Route: 048
  8. PROAIR [Concomitant]
  9. ARICEPT [Concomitant]
     Dosage: 10 MG
     Route: 048
  10. KLOR-CON [Concomitant]
     Dosage: 30 MEQ
     Route: 048
  11. DONEPEZIL [Concomitant]
     Dosage: 10 MG
     Route: 048
  12. DIGOXIN [Concomitant]
     Dosage: 0.125 MG
     Route: 048
  13. LOPRESSOR [Concomitant]
     Dosage: 25 MG
     Route: 048
  14. IRON CR [Concomitant]
     Dosage: 160 MG
     Route: 048
  15. FISH OIL [Concomitant]
     Route: 048

REACTIONS (12)
  - Cerebrovascular accident [Fatal]
  - Dizziness [Unknown]
  - Fall [Unknown]
  - Craniocerebral injury [Unknown]
  - Post concussion syndrome [Unknown]
  - Pleural effusion [Unknown]
  - Pericardial effusion [Unknown]
  - Vaginal haemorrhage [Unknown]
  - Cervix haemorrhage uterine [Unknown]
  - Conjunctival haemorrhage [Unknown]
  - Dyspnoea [Unknown]
  - Haematoma [Unknown]
